FAERS Safety Report 12991353 (Version 2)
Quarter: 2016Q4

REPORT INFORMATION
  Report Type: Spontaneous
  Country: DE (occurrence: DE)
  Receive Date: 20161201
  Receipt Date: 20161212
  Transmission Date: 20170207
  Serious: Yes (Hospitalization)
  Sender: FDA-Public Use
  Company Number: DE-BAXALTA-2016BLT008721

PATIENT
  Age: 52 Year
  Sex: Female

DRUGS (2)
  1. PANTOPRAZOLE [Concomitant]
     Active Substance: PANTOPRAZOLE SODIUM
     Indication: PROPHYLAXIS AGAINST GASTROINTESTINAL ULCER
     Dosage: 50-75 MG
     Route: 048
  2. HYQVIA [Suspect]
     Active Substance: HUMAN IMMUNOGLOBULIN G\HYALURONIDASE RECOMBINANT HUMAN
     Indication: IMMUNODEFICIENCY COMMON VARIABLE
     Dosage: 30G IGG/300ML
     Route: 065
     Dates: start: 20160818

REACTIONS (7)
  - Skin exfoliation [Unknown]
  - Papule [Unknown]
  - Pruritus [Unknown]
  - Pruritus generalised [Unknown]
  - Rash generalised [Unknown]
  - Drug eruption [Unknown]
  - Erythema [Unknown]

NARRATIVE: CASE EVENT DATE: 20161107
